FAERS Safety Report 4821590-0 (Version None)
Quarter: 2005Q4

REPORT INFORMATION
  Report Type: 
  Country: None (occurrence: None)
  Receive Date: 20051107
  Receipt Date: 20051026
  Transmission Date: 20060501
  Serious: Yes (Other)
  Sender: FDA-Public Use
  Company Number: PHBS2005SE15895

PATIENT

DRUGS (2)
  1. PRAVIDEL [Suspect]
     Route: 064
  2. ANTIEPILEPTICS [Concomitant]
     Route: 064

REACTIONS (2)
  - CONVULSION NEONATAL [None]
  - DRUG EXPOSURE DURING PREGNANCY [None]
